FAERS Safety Report 17485775 (Version 1)
Quarter: 2020Q1

REPORT INFORMATION
  Report Type: Report from Study
  Country: ES (occurrence: ES)
  Receive Date: 20200303
  Receipt Date: 20200303
  Transmission Date: 20200409
  Serious: Yes (Hospitalization)
  Sender: FDA-Public Use
  Company Number: ES-TEVA-2020-ES-1193890

PATIENT
  Age: 72 Year
  Sex: Female

DRUGS (6)
  1. FUROSEMIDA(1615A) [Interacting]
     Active Substance: FUROSEMIDE
     Indication: CARDIAC FAILURE CONGESTIVE
     Dosage: 120 MG
     Route: 048
     Dates: start: 20091228
  2. CORLENTOR5MGCOMPRIMIDOSRECUBIERTOSCONPELICULA,56COMPRIM [Concomitant]
     Indication: ISCHAEMIC CARDIOMYOPATHY
     Dosage: 10 MG; 56 TABLETS
     Route: 048
     Dates: start: 20120530
  3. ADIRO100MGCOMPRIMIDOSGASTRORRESISTENTESEFG,30COMPRIMIDO [Concomitant]
     Indication: ISCHAEMIC CARDIOMYOPATHY
     Dosage: 30 TABLETS; 100 MG
     Route: 048
  4. DIANBEN850MGCOMPRIMIDOSRECUBIERTOSCONPELICULA,50COMPRIM [Concomitant]
     Indication: DIABETES MELLITUS
     Dosage: 50 TABLETS, 1.7 GRAM
     Route: 048
  5. VALSART?N+HIDROCLOROTIAZIDA [Suspect]
     Active Substance: HYDROCHLOROTHIAZIDE\VALSARTAN
     Indication: HYPERTENSION
     Dosage: 1 DF
     Route: 048
     Dates: start: 20170607, end: 20171120
  6. BISOPROLOL(2328A) [Concomitant]
     Indication: ISCHAEMIC CARDIOMYOPATHY
     Dosage: 10 MG
     Route: 048
     Dates: start: 20101116

REACTIONS (2)
  - Acute kidney injury [Recovered/Resolved]
  - Drug interaction [Unknown]

NARRATIVE: CASE EVENT DATE: 201711
